FAERS Safety Report 7142071-8 (Version None)
Quarter: 2010Q4

REPORT INFORMATION
  Report Type: 
  Country: None (occurrence: None)
  Receive Date: 20101207
  Receipt Date: 20040603
  Transmission Date: 20110411
  Serious: Yes (Other)
  Sender: FDA-Public Use
  Company Number: B0687773A

PATIENT
  Sex: Male

DRUGS (1)
  1. DILATREND [Suspect]
     Indication: CARDIAC FAILURE
     Dosage: 12.5MG PER DAY
     Route: 065

REACTIONS (1)
  - RHINITIS [None]
